FAERS Safety Report 24720750 (Version 4)
Quarter: 2025Q4

REPORT INFORMATION
  Report Type: Spontaneous
  Country: JP (occurrence: JP)
  Receive Date: 20241211
  Receipt Date: 20251224
  Transmission Date: 20260117
  Serious: Yes (Death, Other)
  Sender: BRISTOL-MYERS SQUIBB COMPANY
  Company Number: JP-BRISTOL-MYERS SQUIBB COMPANY-2024-192019

PATIENT
  Age: 69 Year
  Sex: Male

DRUGS (8)
  1. VIDAZA [Suspect]
     Active Substance: AZACITIDINE
     Indication: Chronic myelomonocytic leukaemia
     Dosage: 1
     Route: 042
     Dates: start: 20240322, end: 20240322
  2. PREDNISOLONE [Concomitant]
     Active Substance: PREDNISOLONE
     Indication: Product used for unknown indication
     Dates: start: 2023, end: 2023
  3. PREDNISOLONE [Concomitant]
     Active Substance: PREDNISOLONE
  4. HYDREA [Concomitant]
     Active Substance: HYDROXYUREA
     Indication: Chronic myelomonocytic leukaemia
  5. VENCLEXTA [Concomitant]
     Active Substance: VENETOCLAX
     Indication: Chronic myelomonocytic leukaemia
  6. FEBUXOSTAT [Concomitant]
     Active Substance: FEBUXOSTAT
     Indication: Chronic myelomonocytic leukaemia
  7. URSO [Concomitant]
     Active Substance: URSODIOL
     Indication: Chronic myelomonocytic leukaemia
  8. MIYA-BM [Concomitant]
     Active Substance: CLOSTRIDIUM BUTYRICUM SPORES STRAIN M-55
     Indication: Chronic myelomonocytic leukaemia

REACTIONS (1)
  - Tumour lysis syndrome [Fatal]

NARRATIVE: CASE EVENT DATE: 20240322
